FAERS Safety Report 26188798 (Version 1)
Quarter: 2025Q4

REPORT INFORMATION
  Report Type: Spontaneous
  Country: AU (occurrence: AU)
  Receive Date: 20251222
  Receipt Date: 20251222
  Transmission Date: 20260118
  Serious: Yes (Other)
  Sender: SANDOZ
  Company Number: AU-GSK-AU2025GSK141030

PATIENT
  Age: 55 Year

DRUGS (6)
  1. DUTASTERIDE\TAMSULOSIN HYDROCHLORIDE [Suspect]
     Active Substance: DUTASTERIDE\TAMSULOSIN HYDROCHLORIDE
     Indication: Benign prostatic hyperplasia
     Dosage: DOSE: 1 DOSE UNSPECIFIED; INTERVAL: 1 DAY
     Dates: start: 20250502, end: 20250921
  2. RITLECITINIB [Suspect]
     Active Substance: RITLECITINIB
     Indication: Vitiligo
     Dosage: 100 MG, QD
     Dates: start: 20250616
  3. DESLORATADINE [Concomitant]
     Active Substance: DESLORATADINE
     Indication: Seasonal allergy
     Dosage: UNK
  4. TAMSULOSIN HYDROCHLORIDE [Concomitant]
     Active Substance: TAMSULOSIN HYDROCHLORIDE
     Indication: Product used for unknown indication
     Dosage: UNK
  5. VITAMIN D NOS [Concomitant]
     Active Substance: CHOLECALCIFEROL\ERGOCALCIFEROL
     Indication: Vitamin D deficiency
     Dosage: UNK
  6. TAMSULOSIN [Concomitant]
     Active Substance: TAMSULOSIN
     Indication: Product used for unknown indication
     Dosage: UNK

REACTIONS (2)
  - Metastases to nervous system [Not Recovered/Not Resolved]
  - Prostate cancer [Not Recovered/Not Resolved]

NARRATIVE: CASE EVENT DATE: 20251005
